FAERS Safety Report 22034209 (Version 1)
Quarter: 2023Q1

REPORT INFORMATION
  Report Type: Spontaneous
  Country: US (occurrence: None)
  Receive Date: 20230222
  Receipt Date: 20230222
  Transmission Date: 20230417
  Serious: Yes (Other)
  Sender: FDA-Public Use
  Company Number: None

PATIENT
  Age: 63 Year
  Sex: Male

DRUGS (1)
  1. PIRFENIDONE [Suspect]
     Active Substance: PIRFENIDONE
     Indication: Interstitial lung disease
     Dosage: 801MG TID ORAL?
     Route: 048
     Dates: start: 20220629, end: 20230131

REACTIONS (2)
  - Liver function test increased [None]
  - Therapy cessation [None]

NARRATIVE: CASE EVENT DATE: 20230123
